FAERS Safety Report 20956786 (Version 4)
Quarter: 2023Q2

REPORT INFORMATION
  Report Type: Report from Study
  Country: US (occurrence: US)
  Receive Date: 20220614
  Receipt Date: 20230515
  Transmission Date: 20230722
  Serious: No
  Sender: FDA-Public Use
  Company Number: US-NOVARTISTESTPH-NVSC2022US135320

PATIENT
  Age: 3 Year
  Sex: Female

DRUGS (3)
  1. ILARIS [Suspect]
     Active Substance: CANAKINUMAB
     Indication: Juvenile idiopathic arthritis
     Dosage: 60 MG, EVERY 28 DAYS
     Route: 058
     Dates: start: 20210930
  2. ILARIS [Suspect]
     Active Substance: CANAKINUMAB
     Dosage: 65 MG, Q4W
     Route: 058
     Dates: start: 20210831
  3. ILARIS [Suspect]
     Active Substance: CANAKINUMAB
     Dosage: 65 MG, Q5W
     Route: 058

REACTIONS (4)
  - Pyrexia [Unknown]
  - Cough [Unknown]
  - Rhinorrhoea [Unknown]
  - Illness [Unknown]

NARRATIVE: CASE EVENT DATE: 20220610
